FAERS Safety Report 15583226 (Version 1)
Quarter: 2018Q4

REPORT INFORMATION
  Report Type: Spontaneous
  Country: CA (occurrence: CA)
  Receive Date: 20181105
  Receipt Date: 20181105
  Transmission Date: 20190205
  Serious: Yes (Other)
  Sender: FDA-Public Use
  Company Number: CA-CIPHER-2016-CA-000942

PATIENT
  Age: 81 Year
  Sex: Female

DRUGS (5)
  1. CELEBREX [Concomitant]
     Active Substance: CELECOXIB
     Dosage: AS REQIURED
  2. HYDROXYCHLOROQUINE [Concomitant]
     Active Substance: HYDROXYCHLOROQUINE
     Dosage: 200.0 MILLIGRAM 2 EVERY 1 DAYS
  3. TRAMADOL HYDROCHLORIDE. [Suspect]
     Active Substance: TRAMADOL HYDROCHLORIDE
     Indication: PAIN
  4. IMURAN [Concomitant]
     Active Substance: AZATHIOPRINE
  5. XELJANZ [Suspect]
     Active Substance: TOFACITINIB CITRATE
     Indication: RHEUMATOID ARTHRITIS
     Dosage: 5 MG 2 EVERY 1 DAY(S)
     Route: 048

REACTIONS (23)
  - Nausea [None]
  - Walking aid user [None]
  - Constipation [None]
  - Headache [None]
  - Mass [None]
  - Fatigue [None]
  - Musculoskeletal stiffness [None]
  - Back pain [None]
  - Chest pain [None]
  - Abdominal distension [None]
  - Burning sensation [None]
  - Drug hypersensitivity [None]
  - Dyspnoea [None]
  - Pelvic pain [None]
  - Peripheral swelling [None]
  - Mobility decreased [None]
  - Gait disturbance [None]
  - Condition aggravated [None]
  - Drug ineffective [None]
  - Pain in extremity [None]
  - Lymphoma [None]
  - Abdominal pain [None]
  - Blister [None]
